FAERS Safety Report 12729404 (Version 1)
Quarter: 2016Q3

REPORT INFORMATION
  Report Type: Spontaneous
  Country: AT (occurrence: AT)
  Receive Date: 20160909
  Receipt Date: 20160909
  Transmission Date: 20161109
  Serious: Yes (Death, Hospitalization)
  Sender: FDA-Public Use
  Company Number: AT-JNJFOC-20160907773

PATIENT
  Age: 69 Year
  Sex: Male

DRUGS (1)
  1. XARELTO [Suspect]
     Active Substance: RIVAROXABAN
     Indication: PRODUCT USED FOR UNKNOWN INDICATION
     Route: 048

REACTIONS (7)
  - Subdural haematoma [Fatal]
  - Skull fracture [Unknown]
  - Cerebral haemorrhage [Fatal]
  - Mechanical ventilation [Unknown]
  - Fall [Unknown]
  - Endotracheal intubation [Unknown]
  - Heart injury [Unknown]
